FAERS Safety Report 23272085 (Version 2)
Quarter: 2023Q4

REPORT INFORMATION
  Report Type: Spontaneous
  Country: US (occurrence: US)
  Receive Date: 20231207
  Receipt Date: 20231220
  Transmission Date: 20240110
  Serious: Yes (Hospitalization, Other)
  Sender: FDA-Public Use
  Company Number: US-HIKMA PHARMACEUTICALS USA INC.-US-H14001-23-67597

PATIENT

DRUGS (42)
  1. DIPHENHYDRAMINE HYDROCHLORIDE [Suspect]
     Active Substance: DIPHENHYDRAMINE HYDROCHLORIDE
     Indication: Product used for unknown indication
     Dosage: 25 MILLIGRAM, QD
     Route: 048
     Dates: start: 20220528, end: 20220528
  2. MELOXICAM [Suspect]
     Active Substance: MELOXICAM
     Indication: Gout
     Dosage: 5 MILLIGRAM, PRN
     Route: 065
     Dates: start: 20220504, end: 20220530
  3. METHOTREXATE [Suspect]
     Active Substance: METHOTREXATE
     Indication: Immunosuppression
     Dosage: 15 MILLIGRAM, WEEKLY
     Route: 048
     Dates: start: 20220301
  4. METHOTREXATE [Suspect]
     Active Substance: METHOTREXATE
     Dosage: 15 MILLIGRAM, WEEKLY
     Route: 048
     Dates: start: 20220405
  5. METHOTREXATE [Suspect]
     Active Substance: METHOTREXATE
     Dosage: 15 MILLIGRAM, WEEKLY
     Route: 048
     Dates: start: 20220412
  6. METHOTREXATE [Suspect]
     Active Substance: METHOTREXATE
     Dosage: 15 MILLIGRAM, WEEKLY
     Route: 048
     Dates: start: 20220426
  7. METHOTREXATE [Suspect]
     Active Substance: METHOTREXATE
     Dosage: 15 MILLIGRAM, WEEKLY
     Route: 048
     Dates: start: 20220503
  8. METHOTREXATE [Suspect]
     Active Substance: METHOTREXATE
     Dosage: 15 MILLIGRAM
     Route: 048
     Dates: start: 20220315
  9. METHOTREXATE [Suspect]
     Active Substance: METHOTREXATE
     Dosage: 15 MILLIGRAM
     Route: 048
     Dates: start: 20220322
  10. METHOTREXATE [Suspect]
     Active Substance: METHOTREXATE
     Dosage: 15 MILLIGRAM
     Route: 048
     Dates: start: 20220329
  11. METHOTREXATE [Suspect]
     Active Substance: METHOTREXATE
     Dosage: 15 MILLIGRAM
     Route: 048
     Dates: start: 20220419
  12. METHOTREXATE [Suspect]
     Active Substance: METHOTREXATE
     Dosage: 15 MILLIGRAM
     Route: 048
     Dates: start: 20220510
  13. METHOTREXATE [Suspect]
     Active Substance: METHOTREXATE
     Dosage: 15 MILLIGRAM
     Route: 048
     Dates: start: 20220517
  14. METHOTREXATE [Suspect]
     Active Substance: METHOTREXATE
     Dosage: 15 MILLIGRAM
     Route: 048
     Dates: start: 20220524
  15. METHOTREXATE [Suspect]
     Active Substance: METHOTREXATE
     Dosage: 15 MILLIGRAM, WEEKLY
     Route: 048
     Dates: start: 20220308
  16. PEGLOTICASE [Suspect]
     Active Substance: PEGLOTICASE
     Dosage: 12 MILLIGRAM
     Route: 058
     Dates: start: 20220426
  17. PEGLOTICASE [Suspect]
     Active Substance: PEGLOTICASE
     Dosage: 12 MILLIGRAM
     Route: 058
     Dates: start: 20220503
  18. PEGLOTICASE [Suspect]
     Active Substance: PEGLOTICASE
     Dosage: 12 MILLIGRAM
     Route: 058
     Dates: start: 20220510
  19. PEGLOTICASE [Suspect]
     Active Substance: PEGLOTICASE
     Dosage: 12 MILLIGRAM
     Route: 058
     Dates: start: 20220517
  20. PEGLOTICASE [Suspect]
     Active Substance: PEGLOTICASE
     Dosage: 12 MILLIGRAM
     Route: 058
     Dates: start: 20220524
  21. PEGLOTICASE [Suspect]
     Active Substance: PEGLOTICASE
     Indication: Gout
     Dosage: 8 MILLIGRAM
     Route: 058
     Dates: start: 20220329, end: 20220329
  22. SODIUM CHLORIDE [Suspect]
     Active Substance: SODIUM CHLORIDE
     Indication: Product used for unknown indication
     Dosage: 10 MILLILITER, Q12H
     Route: 042
  23. ZOFRAN [Suspect]
     Active Substance: ONDANSETRON HYDROCHLORIDE
     Indication: Product used for unknown indication
     Dosage: 4MG=2ML, AS NEEDED
     Route: 042
  24. ATORVASTATIN [Concomitant]
     Active Substance: ATORVASTATIN
     Indication: Hypercholesterolaemia
     Dosage: 10 MILLIGRAM, QD
     Route: 065
     Dates: start: 202105
  25. CLOPIDOGREL [Concomitant]
     Active Substance: CLOPIDOGREL BISULFATE
     Indication: Cerebrovascular accident
     Dosage: 75 MILLIGRAM, QD
     Route: 065
     Dates: start: 202105, end: 20220530
  26. COENZYME Q10 [Concomitant]
     Active Substance: DIETARY SUPPLEMENT\UBIDECARENONE
     Indication: Supplementation therapy
     Dosage: 200 MILLIGRAM, QD
     Route: 065
     Dates: start: 2019, end: 20220530
  27. COLCHICINE [Concomitant]
     Active Substance: COLCHICINE
     Indication: Gout
     Dosage: 0.6 MILLIGRAM, BID
     Route: 065
     Dates: start: 2012
  28. FOLIC ACID [Concomitant]
     Active Substance: FOLIC ACID
     Indication: Prophylaxis
     Dosage: 1 MILLIGRAM, QD
     Route: 048
     Dates: start: 20220301, end: 20220605
  29. HEPARIN [Concomitant]
     Active Substance: HEPARIN SODIUM
     Indication: Product used for unknown indication
     Dosage: 40 UNIT/KILOGRAM, Q6H, PRN
     Route: 042
  30. HYDROCODONE [Concomitant]
     Active Substance: HYDROCODONE
     Indication: Gout
     Dosage: 7.5 MILLIGRAM, PRN
     Route: 065
     Dates: start: 20220504, end: 20220524
  31. INDAPAMIDE [Concomitant]
     Active Substance: INDAPAMIDE
     Indication: Hypertension
     Dosage: 2.5 MILLIGRAM
     Route: 065
     Dates: start: 2005, end: 20220530
  32. LIPITOR [Concomitant]
     Active Substance: ATORVASTATIN CALCIUM
     Indication: Product used for unknown indication
     Dosage: 80 MILLIGRAM, QD
     Route: 048
  33. MEDROL [Concomitant]
     Active Substance: METHYLPREDNISOLONE
     Indication: Gout
     Dosage: 4 MILLIGRAM
     Route: 065
     Dates: start: 20220413, end: 20220419
  34. MORPHINE [Concomitant]
     Active Substance: MORPHINE
     Indication: Product used for unknown indication
     Dosage: 2 MILLIGRAM, PRN, Q2HR
     Route: 042
  35. NITROSTAT [Concomitant]
     Active Substance: NITROGLYCERIN
     Indication: Product used for unknown indication
     Dosage: 0.4 MILLIGRAM, Q5MIN; PRN
     Route: 065
  36. OMEPRAZOLE [Concomitant]
     Active Substance: OMEPRAZOLE
     Indication: Gastrooesophageal reflux disease
     Dosage: 20 MILLIGRAM, QD
     Route: 065
     Dates: start: 1997
  37. PLAVIX [Concomitant]
     Active Substance: CLOPIDOGREL BISULFATE
     Indication: Product used for unknown indication
     Dosage: 75 MILLIGRAM, QD
     Route: 048
  38. PREVAGEN [APOAEQUORIN;COLECALCIFEROL] [Concomitant]
     Indication: Supplementation therapy
     Dosage: 50 MICROGRAM, QD
     Route: 065
     Dates: start: 2019, end: 20220530
  39. OMEPRAZOLE [Concomitant]
     Active Substance: OMEPRAZOLE
     Indication: Product used for unknown indication
     Dosage: 40 MILLIGRAM, QD
     Route: 048
  40. SODIUM CHLORIDE [Concomitant]
     Active Substance: SODIUM CHLORIDE
     Indication: Product used for unknown indication
     Dosage: 1000 MILLILITER
     Route: 065
  41. VASCEPA [Concomitant]
     Active Substance: ICOSAPENT ETHYL
     Indication: Product used for unknown indication
     Dosage: 1 GRAM, BID
     Route: 048
  42. VITAMIN D3 [Concomitant]
     Active Substance: CHOLECALCIFEROL
     Indication: Supplementation therapy
     Dosage: 5000 INTERNATIONAL UNIT
     Route: 065
     Dates: start: 1992

REACTIONS (13)
  - Coronary artery disease [Recovered/Resolved]
  - Chest pain [Recovered/Resolved]
  - Angina pectoris [Unknown]
  - Myocardial infarction [Unknown]
  - Cardiomegaly [Unknown]
  - Bundle branch block right [Unknown]
  - Blood glucose increased [Unknown]
  - Blood uric acid decreased [Unknown]
  - Coagulation test abnormal [Unknown]
  - Haematocrit decreased [Unknown]
  - Red blood cell count decreased [Unknown]
  - Red cell distribution width increased [Unknown]
  - Troponin increased [Unknown]

NARRATIVE: CASE EVENT DATE: 20220526
